FAERS Safety Report 6562064-9 (Version None)
Quarter: 2010Q1

REPORT INFORMATION
  Report Type: 
  Country: None (occurrence: None)
  Receive Date: 20100130
  Receipt Date: 20091123
  Transmission Date: 20100710
  Serious: No
  Sender: FDA-Public Use
  Company Number: US-ABBOTT-09P-163-0601092-00

PATIENT
  Sex: Female
  Weight: 63.106 kg

DRUGS (7)
  1. HUMIRA [Suspect]
     Indication: RHEUMATOID ARTHRITIS
     Route: 058
     Dates: start: 20090701
  2. NEURONTIN [Suspect]
     Indication: BACK PAIN
  3. NEURONTIN [Suspect]
  4. NEURONTIN [Suspect]
  5. FOLIC ACID [Concomitant]
     Indication: VITAMIN SUPPLEMENTATION
  6. PREDNISONE [Concomitant]
     Indication: RHEUMATOID ARTHRITIS
  7. THYROID MEDICATION [Concomitant]
     Indication: HYPOTHYROIDISM

REACTIONS (6)
  - ABDOMINAL PAIN UPPER [None]
  - EAR PAIN [None]
  - HEADACHE [None]
  - OROPHARYNGEAL PAIN [None]
  - TREMOR [None]
  - WEIGHT DECREASED [None]
